FAERS Safety Report 6619335-7 (Version None)
Quarter: 2010Q1

REPORT INFORMATION
  Report Type: 
  Country: None (occurrence: None)
  Receive Date: 20100303
  Receipt Date: 20100218
  Transmission Date: 20100710
  Serious: Yes (Other)
  Sender: FDA-Public Use
  Company Number: 1000012133

PATIENT
  Age: 19 Year
  Sex: Male

DRUGS (2)
  1. LEXAPRO [Suspect]
     Indication: ANXIETY DISORDER
     Dosage: ORAL
     Route: 048
  2. LEXAPRO [Suspect]
     Indication: PANIC DISORDER
     Dosage: ORAL
     Route: 048

REACTIONS (3)
  - AGGRESSION [None]
  - CONDITION AGGRAVATED [None]
  - HOSTILITY [None]
